FAERS Safety Report 16001592 (Version 3)
Quarter: 2019Q4

REPORT INFORMATION
  Report Type: Report from Study
  Country: US (occurrence: US)
  Receive Date: 20190225
  Receipt Date: 20191214
  Transmission Date: 20200122
  Serious: No
  Sender: FDA-Public Use
  Company Number: PHEH2019US008125

PATIENT
  Age: 56 Year
  Sex: Female

DRUGS (1)
  1. COSENTYX [Suspect]
     Active Substance: SECUKINUMAB
     Indication: PSORIASIS
     Dosage: 300 MG, QMO (INJECT 2 PENS (300 MG) SUBCUTANEOUSLY ONCE EVERY 4 WEEKS)
     Route: 058
     Dates: start: 20181023

REACTIONS (4)
  - Rales [Recovering/Resolving]
  - Drug ineffective [Unknown]
  - Psoriasis [Unknown]
  - Blood glucose increased [Unknown]

NARRATIVE: CASE EVENT DATE: 20190206
